FAERS Safety Report 12643217 (Version 2)
Quarter: 2017Q2

REPORT INFORMATION
  Report Type: Spontaneous
  Country: US (occurrence: US)
  Receive Date: 20160811
  Receipt Date: 20170602
  Transmission Date: 20170830
  Serious: Yes (Other)
  Sender: FDA-Public Use
  Company Number: US-ASTRAZENECA-2016SE85190

PATIENT
  Age: 70 Year
  Sex: Female

DRUGS (3)
  1. IBRANCE [Suspect]
     Active Substance: PALBOCICLIB
     Route: 048
     Dates: start: 20160527
  2. FASLODEX [Suspect]
     Active Substance: FULVESTRANT
     Route: 030
  3. IBRANCE [Suspect]
     Active Substance: PALBOCICLIB
     Dosage: 75.0MG UNKNOWN
     Route: 048
     Dates: start: 20160527

REACTIONS (8)
  - Neutropenia [Unknown]
  - Dyspnoea [Unknown]
  - Nausea [Unknown]
  - Asthenia [Unknown]
  - Hot flush [Unknown]
  - Anaemia [Unknown]
  - Syncope [Unknown]
  - Dizziness [Unknown]
